APPROVED DRUG PRODUCT: TORADOL
Active Ingredient: KETOROLAC TROMETHAMINE
Strength: 10MG **Federal Register determination that product was not discontinued or withdrawn for safety or effectiveness reasons**
Dosage Form/Route: TABLET;ORAL
Application: N019645 | Product #001
Applicant: ROCHE PALO ALTO LLC
Approved: Dec 20, 1991 | RLD: Yes | RS: No | Type: DISCN